FAERS Safety Report 10030685 (Version 2)
Quarter: 2014Q1

REPORT INFORMATION
  Report Type: Spontaneous
  Country: US (occurrence: US)
  Receive Date: 20140323
  Receipt Date: 20140323
  Transmission Date: 20141002
  Serious: No
  Sender: FDA-Public Use
  Company Number: US-ALLERGAN-1400202US

PATIENT
  Sex: Female

DRUGS (3)
  1. LATISSE 0.03% [Suspect]
     Indication: PRODUCT USED FOR UNKNOWN INDICATION
     Dosage: UNK
     Dates: start: 201312
  2. BOTOX COSMETIC [Concomitant]
     Indication: SKIN WRINKLING
     Dosage: 29 UNITS, SINGLE
     Route: 030
     Dates: start: 201312, end: 201312
  3. BOTOX COSMETIC [Concomitant]
     Indication: SKIN WRINKLING

REACTIONS (1)
  - Application site pruritus [Not Recovered/Not Resolved]
